FAERS Safety Report 8853126 (Version 2)
Quarter: 2012Q4

REPORT INFORMATION
  Report Type: 
  Country: UA (occurrence: UA)
  Receive Date: 20121023
  Receipt Date: 20121031
  Transmission Date: 20130627
  Serious: Yes (Other)
  Sender: FDA-Public Use
  Company Number: UA-ABBOTT-12P-269-0996255-00

PATIENT
  Sex: Female

DRUGS (3)
  1. KLACID [Suspect]
     Indication: HELICOBACTER GASTRITIS
     Dosage: Four tablets per day
     Route: 048
     Dates: start: 201210, end: 20121012
  2. NOLPAZA [Concomitant]
     Indication: PRODUCT USED FOR UNKNOWN INDICATION
  3. PANGROL [Concomitant]
     Indication: PRODUCT USED FOR UNKNOWN INDICATION

REACTIONS (11)
  - Tongue oedema [Not Recovered/Not Resolved]
  - Pharyngeal oedema [Not Recovered/Not Resolved]
  - Dysphagia [Not Recovered/Not Resolved]
  - Oedema genital [Not Recovered/Not Resolved]
  - Genital burning sensation [Not Recovered/Not Resolved]
  - Gastrointestinal pain [Not Recovered/Not Resolved]
  - Diarrhoea [Not Recovered/Not Resolved]
  - Pruritus genital [Not Recovered/Not Resolved]
  - Glossitis [Not Recovered/Not Resolved]
  - Hyperaemia [Not Recovered/Not Resolved]
  - Hyperaemia [Not Recovered/Not Resolved]
